FAERS Safety Report 24081088 (Version 1)
Quarter: 2024Q3

REPORT INFORMATION
  Report Type: Spontaneous
  Country: US (occurrence: US)
  Receive Date: 20240711
  Receipt Date: 20240711
  Transmission Date: 20241017
  Serious: No
  Sender: NOVO NORDISK
  Company Number: US-NOVOPROD-1236401

PATIENT
  Sex: Female

DRUGS (1)
  1. RIVFLOZA [Suspect]
     Active Substance: NEDOSIRAN SODIUM
     Dosage: 160MG SC ONCE MONTHLY
     Route: 058
     Dates: start: 20240417, end: 20240517

REACTIONS (2)
  - Amenorrhoea [Not Recovered/Not Resolved]
  - Abdominal pain [Not Recovered/Not Resolved]
